FAERS Safety Report 18232964 (Version 1)
Quarter: 2020Q3

REPORT INFORMATION
  Report Type: Spontaneous
  Country: US (occurrence: US)
  Receive Date: 20200904
  Receipt Date: 20200904
  Transmission Date: 20201103
  Serious: No
  Sender: FDA-Public Use
  Company Number: None

PATIENT
  Age: 86 Year
  Sex: Male

DRUGS (1)
  1. APIXABAN (APIXABAN 2.5MG TAB) [Suspect]
     Active Substance: APIXABAN
     Indication: ATRIAL FIBRILLATION
     Route: 048
     Dates: start: 20200413, end: 20200822

REACTIONS (3)
  - Transient ischaemic attack [None]
  - Ischaemic stroke [None]
  - Cerebral infarction [None]

NARRATIVE: CASE EVENT DATE: 20200821
